FAERS Safety Report 6392218-6 (Version None)
Quarter: 2009Q4

REPORT INFORMATION
  Report Type: 
  Country: None (occurrence: None)
  Receive Date: 20091007
  Receipt Date: 20091002
  Transmission Date: 20100525
  Serious: Yes (Other)
  Sender: FDA-Public Use
  Company Number: US-B.I. PHARMACEUTICALS,INC./RIDGEFIELD-2009-BP-07742PF

PATIENT
  Sex: Female
  Weight: 108.18 kg

DRUGS (16)
  1. SPIRIVA [Suspect]
     Indication: CHRONIC OBSTRUCTIVE PULMONARY DISEASE
     Dates: start: 20080101
  2. SPIRIVA [Suspect]
     Indication: EMPHYSEMA
  3. PHENYTOIN [Suspect]
     Indication: CONVULSION
     Dosage: 300 MG
     Dates: start: 20040101
  4. HYDROXYZINE [Suspect]
     Indication: ANXIETY
     Dosage: 100 MG
     Dates: start: 20040101
  5. GABAPENTIN [Suspect]
     Indication: FIBROMYALGIA
     Dosage: 400 MG
     Dates: start: 20080101, end: 20080101
  6. PREGABALIN [Suspect]
     Indication: FIBROMYALGIA
     Dosage: 200 MG
     Dates: start: 20080101
  7. BENICAR [Concomitant]
  8. DILTIAZEM (CARDIZEM LA) [Concomitant]
  9. FLEXERIL [Concomitant]
  10. LEXAPRO [Concomitant]
  11. NEXIUM [Concomitant]
  12. PROMETHAZINE (PHENERGAN) [Concomitant]
  13. REQUIP [Concomitant]
  14. ROBAXIN [Concomitant]
  15. HYDROCODONE/ACETAMINOPHEN (LORTAB) [Concomitant]
  16. ULTRAM [Concomitant]

REACTIONS (10)
  - ARTHROPATHY [None]
  - BACK INJURY [None]
  - BLOOD CHOLESTEROL INCREASED [None]
  - CYST [None]
  - FALL [None]
  - JOINT INJURY [None]
  - NECK INJURY [None]
  - PULMONARY EMBOLISM [None]
  - THYROID CANCER [None]
  - THYROID NEOPLASM [None]
